FAERS Safety Report 8026328-4 (Version None)
Quarter: 2012Q1

REPORT INFORMATION
  Report Type: 
  Country: None (occurrence: None)
  Receive Date: 20120105
  Receipt Date: 20111022
  Transmission Date: 20120608
  Serious: No
  Sender: FDA-Public Use
  Company Number: US-ABBOTT-11P-163-0868863-00

PATIENT
  Sex: Female

DRUGS (2)
  1. SYNTHROID [Suspect]
     Dates: start: 20110801
  2. SYNTHROID [Suspect]
     Indication: THYROIDECTOMY
     Dates: start: 20110801, end: 20110801

REACTIONS (3)
  - SKIN REACTION [None]
  - RASH [None]
  - HYPERSENSITIVITY [None]
